FAERS Safety Report 5861964-2 (Version None)
Quarter: 2008Q3

REPORT INFORMATION
  Report Type: 
  Country: None (occurrence: None)
  Receive Date: 20080827
  Receipt Date: 20080725
  Transmission Date: 20090109
  Serious: No
  Sender: FDA-Public Use
  Company Number: US-ABBOTT-08P-163-0465512-00

PATIENT
  Sex: Female

DRUGS (1)
  1. COATED PDS [Suspect]
     Indication: DRUG USE FOR UNKNOWN INDICATION
     Route: 048
     Dates: start: 20080705, end: 20080725

REACTIONS (4)
  - DIZZINESS [None]
  - LACERATION [None]
  - LOSS OF CONSCIOUSNESS [None]
  - VOMITING [None]
